FAERS Safety Report 6563982-8 (Version None)
Quarter: 2010Q1

REPORT INFORMATION
  Report Type: 
  Country: None (occurrence: None)
  Receive Date: 20100131
  Receipt Date: 20100119
  Transmission Date: 20100710
  Serious: Yes (Hospitalization)
  Sender: FDA-Public Use
  Company Number: US-JNJFOC-20100107608

PATIENT
  Sex: Female
  Weight: 113.4 kg

DRUGS (4)
  1. REMICADE [Suspect]
     Indication: RHEUMATOID ARTHRITIS
     Route: 042
  2. REMICADE [Suspect]
     Route: 042
  3. REMICADE [Suspect]
     Route: 042
  4. METHOTREXATE [Concomitant]

REACTIONS (5)
  - DIABETES MELLITUS [None]
  - DRUG LEVEL DECREASED [None]
  - MYOCARDIAL INFARCTION [None]
  - NAIL DISCOLOURATION [None]
  - PALLOR [None]
